FAERS Safety Report 5675277-5 (Version None)
Quarter: 2008Q1

REPORT INFORMATION
  Report Type: 
  Country: None (occurrence: None)
  Receive Date: 20080320
  Receipt Date: 20080310
  Transmission Date: 20080703
  Serious: Yes (Death)
  Sender: FDA-Public Use
  Company Number: US-ELI_LILLY_AND_COMPANY-US200802005322

PATIENT
  Sex: Female

DRUGS (11)
  1. CYMBALTA [Suspect]
     Indication: PAIN
     Dosage: 30 MG, DAILY (1/D)
     Route: 048
     Dates: start: 20050425, end: 20071226
  2. DEPAKOTE [Concomitant]
     Indication: CONVULSION
     Dosage: 500 G, 2/D
     Dates: start: 20070807, end: 20071014
  3. DEPAKOTE [Concomitant]
     Dosage: 500 MG, 3/D
     Dates: start: 20071015, end: 20080102
  4. DEPAKOTE [Concomitant]
     Dates: start: 20080103, end: 20080113
  5. FISH OIL [Concomitant]
     Dosage: 4 D/F, UNK
     Dates: start: 20070901
  6. KEPPRA [Concomitant]
     Indication: CONVULSION
     Dosage: 1500 MG, 2/D
     Dates: start: 20060713, end: 20071206
  7. KEPPRA [Concomitant]
     Dosage: 1000 MG, 2/D
     Dates: start: 20071207
  8. ATIVAN [Concomitant]
     Dosage: 1 MG, AS NEEDED
  9. DARVOCET-N 100 [Concomitant]
     Indication: PAIN
  10. FOLIC ACID [Concomitant]
     Indication: VITAMIN SUPPLEMENTATION
     Dosage: 1 MG, DAILY (1/D)
  11. BOTOX [Concomitant]
     Indication: DYSTONIA
     Route: 030

REACTIONS (1)
  - HEPATIC FAILURE [None]
